FAERS Safety Report 5512316-6 (Version None)
Quarter: 2007Q4

REPORT INFORMATION
  Report Type: 
  Country: None (occurrence: None)
  Receive Date: 20071112
  Receipt Date: 20071017
  Transmission Date: 20080405
  Serious: No
  Sender: FDA-Public Use
  Company Number: A0688773A

PATIENT
  Age: 2 Year
  Sex: Female

DRUGS (1)
  1. VERAMYST [Suspect]
     Indication: SNORING
     Route: 045

REACTIONS (2)
  - EYE PAIN [None]
  - PHOTOPHOBIA [None]
